FAERS Safety Report 21025269 (Version 3)
Quarter: 2022Q3

REPORT INFORMATION
  Report Type: Spontaneous
  Country: US (occurrence: US)
  Receive Date: 20220630
  Receipt Date: 20220706
  Transmission Date: 20221026
  Serious: Yes (Death, Life-Threatening, Hospitalization, Other)
  Sender: FDA-Public Use
  Company Number: US-UNITED THERAPEUTICS-UNT-2022-013896

PATIENT
  Age: 59 Year
  Sex: Male
  Weight: 73.016 kg

DRUGS (3)
  1. REMODULIN [Suspect]
     Active Substance: TREPROSTINIL
     Indication: Pulmonary arterial hypertension
     Dosage: UNK, CONTINUING
     Route: 041
     Dates: start: 20200214
  2. REMODULIN [Suspect]
     Active Substance: TREPROSTINIL
     Dosage: 0.050 ?G/KG, CONTINUING
     Route: 041
  3. AMBRISENTAN [Concomitant]
     Active Substance: AMBRISENTAN
     Indication: Product used for unknown indication
     Dosage: UNK
     Route: 065

REACTIONS (15)
  - Death [Fatal]
  - Cardiac arrest [Unknown]
  - Vascular device infection [Unknown]
  - Ascites [Unknown]
  - Loss of consciousness [Unknown]
  - Malaise [Unknown]
  - Oxygen saturation decreased [Unknown]
  - Nervousness [Unknown]
  - Asthenia [Unknown]
  - Fall [Recovered/Resolved with Sequelae]
  - Scab [Unknown]
  - Catheter site related reaction [Unknown]
  - Lip discolouration [Unknown]
  - Abdominal distension [Unknown]
  - Device failure [Recovered/Resolved]

NARRATIVE: CASE EVENT DATE: 20220601
